FAERS Safety Report 22212670 (Version 1)
Quarter: 2023Q2

REPORT INFORMATION
  Report Type: Report from Study
  Country: IN (occurrence: IN)
  Receive Date: 20230414
  Receipt Date: 20230414
  Transmission Date: 20230721
  Serious: Yes (Death)
  Sender: FDA-Public Use
  Company Number: IN-MYLANLABS-2023M1039706

PATIENT

DRUGS (2)
  1. URSODIOL [Suspect]
     Active Substance: URSODIOL
     Indication: Liver injury
     Dosage: 300 MILLIGRAM, BID
     Route: 065
  2. URSODIOL [Suspect]
     Active Substance: URSODIOL
     Indication: Acute on chronic liver failure

REACTIONS (1)
  - Drug ineffective [Fatal]
